FAERS Safety Report 6495561-5 (Version None)
Quarter: 2009Q4

REPORT INFORMATION
  Report Type: 
  Country: None (occurrence: None)
  Receive Date: 20091214
  Receipt Date: 20090714
  Transmission Date: 20100525
  Serious: Yes (Other)
  Sender: FDA-Public Use
  Company Number: US-BRISTOL-MYERS SQUIBB COMPANY-14701379

PATIENT
  Age: 65 Year
  Sex: Female
  Weight: 122 kg

DRUGS (4)
  1. ABILIFY [Suspect]
     Indication: BIPOLAR DISORDER
     Dosage: 1 DF=1 TAB(10MG)
     Route: 048
  2. CYMBALTA [Concomitant]
  3. XANAX [Concomitant]
  4. CHOLESTEROL MEDICATION [Concomitant]

REACTIONS (2)
  - DIABETES MELLITUS [None]
  - WEIGHT INCREASED [None]
